FAERS Safety Report 15027057 (Version 1)
Quarter: 2018Q2

REPORT INFORMATION
  Report Type: Spontaneous
  Country: ES (occurrence: ES)
  Receive Date: 20180619
  Receipt Date: 20180619
  Transmission Date: 20180711
  Serious: Yes (Death, Hospitalization)
  Sender: FDA-Public Use
  Company Number: ES-TEVA-2018-ES-908852

PATIENT
  Age: 59 Year
  Sex: Female

DRUGS (3)
  1. TRAMADOL. [Suspect]
     Active Substance: TRAMADOL
     Indication: SUICIDE ATTEMPT
     Route: 048
     Dates: start: 20180410, end: 20180410
  2. GABAPENTINA (2641A) [Suspect]
     Active Substance: GABAPENTIN
     Indication: SUICIDE ATTEMPT
     Route: 048
     Dates: start: 20180410, end: 20180410
  3. LORAZEPAM (1864A) [Suspect]
     Active Substance: LORAZEPAM
     Indication: SUICIDE ATTEMPT
     Route: 048
     Dates: start: 20180410, end: 20180410

REACTIONS (2)
  - Intentional overdose [Fatal]
  - Coma [Fatal]

NARRATIVE: CASE EVENT DATE: 20180411
